FAERS Safety Report 24570678 (Version 1)
Quarter: 2024Q4

REPORT INFORMATION
  Report Type: Spontaneous
  Country: IN (occurrence: IN)
  Receive Date: 20241031
  Receipt Date: 20241031
  Transmission Date: 20250115
  Serious: Yes (Other)
  Sender: STRIDES
  Company Number: IN-STRIDES ARCOLAB LIMITED-2024SP014027

PATIENT
  Age: 27 Year
  Sex: Male

DRUGS (3)
  1. ATOMOXETINE [Interacting]
     Active Substance: ATOMOXETINE HYDROCHLORIDE
     Indication: Attention deficit hyperactivity disorder
     Dosage: 10 MILLIGRAM
     Route: 065
  2. BUPROPION [Interacting]
     Active Substance: BUPROPION
     Indication: Nicotine dependence
     Dosage: 150 MILLIGRAM
     Route: 065
  3. NICOTINE [Interacting]
     Active Substance: NICOTINE
     Indication: Nicotine dependence
     Dosage: UNK
     Route: 065

REACTIONS (3)
  - Drug interaction [Recovered/Resolved]
  - Painful ejaculation [Recovered/Resolved]
  - Dysuria [Recovered/Resolved]
